FAERS Safety Report 7342022-7 (Version None)
Quarter: 2011Q1

REPORT INFORMATION
  Report Type: 
  Country: None (occurrence: None)
  Receive Date: 20110309
  Receipt Date: 20110308
  Transmission Date: 20110831
  Serious: Yes (Other)
  Sender: FDA-Public Use
  Company Number: AU-AMGEN-AUSSP2010008429

PATIENT
  Age: 66 Year
  Sex: Male

DRUGS (2)
  1. NPLATE [Suspect]
  2. NPLATE [Suspect]
     Indication: IDIOPATHIC THROMBOCYTOPENIC PURPURA
     Dosage: 6 A?G/KG, QWK
     Route: 058
     Dates: start: 20101126

REACTIONS (2)
  - PLATELET COUNT INCREASED [None]
  - PLATELET COUNT DECREASED [None]
